FAERS Safety Report 21791926 (Version 1)
Quarter: 2022Q4

REPORT INFORMATION
  Report Type: Report from Study
  Country: US (occurrence: US)
  Receive Date: 20221229
  Receipt Date: 20221229
  Transmission Date: 20230113
  Serious: No
  Sender: FDA-Public Use
  Company Number: US-ABBVIE-4205994

PATIENT
  Sex: Female

DRUGS (8)
  1. RINVOQ [Suspect]
     Active Substance: UPADACITINIB
     Indication: Rheumatoid arthritis
     Route: 048
     Dates: start: 20221101
  2. BIOTIN 5000 MCG TAB RAPDIS [Concomitant]
     Indication: Product used for unknown indication
  3. METHOTREXATE (METHOTREXATE SODIUM) [Concomitant]
     Active Substance: METHOTREXATE SODIUM
     Indication: Product used for unknown indication
  4. ULTIVIT WITH IRON TAB CHEW [Concomitant]
     Indication: Product used for unknown indication
  5. PENTASA 500 MG CAPSULE [Concomitant]
     Indication: Product used for unknown indication
  6. GINGER 500 MG CAPSULE [Concomitant]
     Indication: Product used for unknown indication
  7. OYSTER SHELL CALCIUM 500 MG TB [Concomitant]
     Indication: Product used for unknown indication
  8. ACIDOPHILUS 100 MG CAPSULE [Concomitant]
     Indication: Product used for unknown indication

REACTIONS (1)
  - Pain [Unknown]
